FAERS Safety Report 17257955 (Version 1)
Quarter: 2020Q1

REPORT INFORMATION
  Report Type: Spontaneous
  Country: IT (occurrence: IT)
  Receive Date: 20200110
  Receipt Date: 20200110
  Transmission Date: 20200409
  Serious: Yes (Other)
  Sender: FDA-Public Use
  Company Number: IT-MYLANLABS-2020M1002458

PATIENT
  Age: 78 Year
  Sex: Female

DRUGS (2)
  1. CAPECITABINE. [Suspect]
     Active Substance: CAPECITABINE
     Indication: NEOPLASM RECURRENCE
     Dosage: 2000 MILLIGRAM, CYCLE
     Route: 048
     Dates: start: 20190719, end: 20190906
  2. CARBOPLATIN. [Suspect]
     Active Substance: CARBOPLATIN
     Indication: NEOPLASM RECURRENCE
     Dosage: 300 MILLIGRAM, CYCLE
     Route: 042
     Dates: start: 20190719, end: 20190906

REACTIONS (3)
  - Fluid retention [Recovering/Resolving]
  - Oedema [Recovering/Resolving]
  - Deep vein thrombosis [Recovering/Resolving]

NARRATIVE: CASE EVENT DATE: 20190829
